FAERS Safety Report 7065385 (Version 2)
Quarter: 2016Q1

REPORT INFORMATION
  Report Type: Spontaneous
  Country: DE (occurrence: DE)
  Receive Date: 20090728
  Receipt Date: 20160128
  Transmission Date: 20160526
  Serious: Yes (Other)
  Sender: FDA-Public Use
  Company Number: DE-BRISTOL-MYERS SQUIBB COMPANY-14710404

PATIENT
  Age: 0 Day
  Sex: Female
  Weight: 1.52 kg

DRUGS (1)
  1. ABILIFY [Suspect]
     Active Substance: ARIPIPRAZOLE
     Indication: PRODUCT USED FOR UNKNOWN INDICATION
     Dosage: 10 MG, QD
     Route: 048
     Dates: start: 20070510

REACTIONS (3)
  - Foetal exposure during pregnancy [Unknown]
  - Inguinal hernia [Unknown]
  - Premature baby [Unknown]

NARRATIVE: CASE EVENT DATE: 20080821
